FAERS Safety Report 4972291-X (Version None)
Quarter: 2006Q2

REPORT INFORMATION
  Report Type: 
  Country: None (occurrence: None)
  Receive Date: 20060413
  Receipt Date: 20060403
  Transmission Date: 20061013
  Serious: Yes (Disabling)
  Sender: FDA-Public Use
  Company Number: GB-ABBOTT-06P-167-0329889-00

PATIENT
  Age: 58 Year
  Sex: Female
  Weight: 87 kg

DRUGS (6)
  1. REDUCTIL 15MG [Suspect]
     Indication: OBESITY
     Route: 048
     Dates: start: 20050809, end: 20051220
  2. ACETAMINOPHEN W/ CODEINE [Concomitant]
     Indication: DRUG USE FOR UNKNOWN INDICATION
     Route: 048
  3. DOCUSATE [Concomitant]
     Indication: DRUG USE FOR UNKNOWN INDICATION
  4. LACTITOL [Concomitant]
     Indication: DRUG USE FOR UNKNOWN INDICATION
  5. NULYTELY [Concomitant]
     Indication: DRUG USE FOR UNKNOWN INDICATION
  6. NAPROXEN [Concomitant]
     Indication: DRUG USE FOR UNKNOWN INDICATION
     Route: 048

REACTIONS (3)
  - CEREBROVASCULAR ACCIDENT [None]
  - ISCHAEMIA [None]
  - ISCHAEMIC STROKE [None]
